FAERS Safety Report 25509804 (Version 1)
Quarter: 2025Q3

REPORT INFORMATION
  Report Type: Spontaneous
  Country: CA (occurrence: None)
  Receive Date: 20250702
  Receipt Date: 20250702
  Transmission Date: 20251020
  Serious: Yes (Disabling)
  Sender: FDA-CTU
  Company Number: None

PATIENT
  Age: 85 Year
  Sex: Female
  Weight: 53.1 kg

DRUGS (8)
  1. PIROXICAM [Suspect]
     Active Substance: PIROXICAM
     Indication: Greater trochanteric pain syndrome
     Route: 048
     Dates: start: 20250614
  2. PIROXICAM [Suspect]
     Active Substance: PIROXICAM
     Indication: Myositis
  3. XALATAN [Concomitant]
     Active Substance: LATANOPROST
  4. FELDENE [Concomitant]
     Active Substance: PIROXICAM
  5. Omega [Concomitant]
  6. VITAMIN D NOS [Concomitant]
     Active Substance: CHOLECALCIFEROL\ERGOCALCIFEROL
  7. VITAMIN C [Concomitant]
     Active Substance: ASCORBIC ACID
  8. Advanced Areds [Concomitant]

REACTIONS (2)
  - Oedema peripheral [None]
  - Muscle twitching [None]

NARRATIVE: CASE EVENT DATE: 20250702
